FAERS Safety Report 16612007 (Version 1)
Quarter: 2019Q3

REPORT INFORMATION
  Report Type: Spontaneous
  Country: DE (occurrence: DE)
  Receive Date: 20190722
  Receipt Date: 20190722
  Transmission Date: 20191004
  Serious: Yes (Other)
  Sender: FDA-Public Use
  Company Number: DE-ANIPHARMA-2019-DE-000100

PATIENT
  Sex: Female

DRUGS (2)
  1. CANDESARTAN. [Suspect]
     Active Substance: CANDESARTAN
     Indication: HYPERTENSION
     Dosage: UNK
     Route: 048
     Dates: start: 2019
  2. EUTHYROX [Suspect]
     Active Substance: LEVOTHYROXINE SODIUM
     Dosage: 100 UG UNK / 88 UG UNK / 75 UG UNK / 50 UG UNK
     Route: 065
     Dates: start: 2019

REACTIONS (11)
  - Pain [Unknown]
  - Malaise [Unknown]
  - Discomfort [Unknown]
  - Drug interaction [Unknown]
  - Dyspnoea [Unknown]
  - Sleep disorder [Unknown]
  - Heart rate increased [Unknown]
  - Restlessness [Unknown]
  - Anxiety [Unknown]
  - Abdominal discomfort [Unknown]
  - Thyroid adenoma [Unknown]

NARRATIVE: CASE EVENT DATE: 2019
